FAERS Safety Report 15386450 (Version 1)
Quarter: 2018Q3

REPORT INFORMATION
  Report Type: Spontaneous
  Country: US (occurrence: US)
  Receive Date: 20180914
  Receipt Date: 20180914
  Transmission Date: 20181010
  Serious: No
  Sender: FDA-Public Use
  Company Number: US-PERRIGO-18US001306

PATIENT
  Age: 67 Year
  Sex: Female

DRUGS (1)
  1. NYSTOP [Suspect]
     Active Substance: NYSTATIN
     Indication: FUNGAL SKIN INFECTION
     Dosage: UNKNOWN, UNKNOWN
     Route: 061
     Dates: start: 201801

REACTIONS (1)
  - Burning sensation [Unknown]

NARRATIVE: CASE EVENT DATE: 201801
